FAERS Safety Report 6704051-3 (Version None)
Quarter: 2010Q2

REPORT INFORMATION
  Report Type: 
  Country: None (occurrence: None)
  Receive Date: 20100430
  Receipt Date: 20100427
  Transmission Date: 20101027
  Serious: Yes (Hospitalization)
  Sender: FDA-Public Use
  Company Number: BR-BAYER-201012924LA

PATIENT
  Age: 73 Year
  Sex: Male

DRUGS (1)
  1. AVELOX [Suspect]
     Indication: MASTOIDITIS
     Dosage: 1 TABLET PER DAY
     Route: 048
     Dates: start: 20091205, end: 20091223

REACTIONS (1)
  - POST PROCEDURAL HAEMORRHAGE [None]
